FAERS Safety Report 7481559-7 (Version None)
Quarter: 2011Q2

REPORT INFORMATION
  Report Type: 
  Country: None (occurrence: None)
  Receive Date: 20110516
  Receipt Date: 20110505
  Transmission Date: 20111010
  Serious: Yes (Hospitalization, Other)
  Sender: FDA-Public Use
  Company Number: US-SANOFI-AVENTIS-2011SA029344

PATIENT
  Age: 69 Year
  Sex: Female

DRUGS (39)
  1. PHENAZOPYRIDINE HCL TAB [Concomitant]
     Indication: BLADDER PAIN
     Route: 048
     Dates: start: 20080101
  2. PERCOCET [Concomitant]
     Indication: PAIN
     Dosage: 5/325 MG TWICE A DAY
     Route: 048
     Dates: start: 20080101
  3. PRIMIDONE [Concomitant]
     Indication: TREMOR
     Route: 048
     Dates: start: 20080101
  4. ZOFRAN [Concomitant]
     Indication: NAUSEA
     Dosage: EVERY 8 HOURS AS NEEDED
     Route: 048
     Dates: start: 20100514
  5. REQUIP [Concomitant]
     Route: 048
     Dates: start: 20060101
  6. URINARY ANTISPASMODICS [Concomitant]
     Dosage: 10 MG EVERY MORNING
     Route: 048
     Dates: start: 20080101
  7. CYMBALTA [Concomitant]
     Indication: DEPRESSION
     Route: 048
     Dates: start: 20090901
  8. DOCETAXEL [Suspect]
     Indication: NON-SMALL CELL LUNG CANCER
     Dosage: EVERY 21 DAYS
     Route: 041
     Dates: start: 20100514, end: 20100514
  9. LIDOCAINE HCL VISCOUS [Concomitant]
     Route: 048
     Dates: start: 20100518
  10. AMLODIPINE BESYLATE [Concomitant]
     Indication: HYPERTENSION
     Route: 048
  11. LEVOTHYROXINE SODIUM [Concomitant]
     Indication: HYPOTHYROIDISM
     Route: 048
     Dates: start: 20050101
  12. CARBOPLATIN [Suspect]
     Indication: NON-SMALL CELL LUNG CANCER
     Dosage: EVERY 21 DAYS
     Route: 042
     Dates: start: 20100514, end: 20100514
  13. DEPAKOTE [Concomitant]
     Dosage: SLEEP AID  NOT USED FOR SEIZURES
     Route: 048
     Dates: start: 20000101
  14. MIRALAX [Concomitant]
     Indication: CONSTIPATION
     Route: 048
     Dates: start: 19900101
  15. FOSAMAX [Concomitant]
     Indication: BONE DISORDER
     Dosage: FOSAMAX/ VITAMIN D 70MG/2800MG 1 TABLET WEEKLY
     Route: 048
     Dates: start: 20000101
  16. FLONASE [Concomitant]
     Indication: MULTIPLE ALLERGIES
     Route: 045
     Dates: start: 20080101
  17. PROPRANOLOL [Concomitant]
     Indication: HYPERTENSION
     Route: 048
     Dates: start: 19800101
  18. PHENAZOPYRIDINE HCL TAB [Concomitant]
     Route: 048
     Dates: start: 20080101
  19. FEXOFENADINE HCL [Concomitant]
     Indication: MULTIPLE ALLERGIES
     Route: 048
  20. PHENERGAN HCL [Concomitant]
     Indication: NAUSEA
     Dosage: 25 MG ONCE DAILY AS NEEDED
     Route: 048
     Dates: start: 20100514
  21. ALL OTHER THERAPEUTIC PRODUCTS [Concomitant]
     Route: 048
     Dates: start: 20100518
  22. AVASTIN [Suspect]
     Dosage: EVERY 21 DAYS
     Route: 042
     Dates: start: 20100101, end: 20100101
  23. DEPAKOTE [Concomitant]
     Indication: SLEEP DISORDER
     Dosage: MOOD
     Route: 048
     Dates: start: 20000101
  24. SENOKOT /USA/ [Concomitant]
     Indication: CONSTIPATION
     Route: 048
     Dates: start: 19900101
  25. VITAMIN D [Concomitant]
     Indication: BONE DISORDER
     Dosage: FOSAMAX/ VITAMIN D 70MG/2800MG 1 TABLET WEEKLY
     Route: 048
     Dates: start: 20000101
  26. ARICEPT [Concomitant]
     Indication: DEMENTIA
     Route: 048
     Dates: start: 20100514
  27. HYDROXYZINE HYDROCHLORIDE [Concomitant]
     Indication: MOTION SICKNESS
     Route: 048
     Dates: start: 20090101
  28. MULTI-VITAMINS [Concomitant]
     Indication: VITAMIN SUPPLEMENTATION
     Route: 048
     Dates: start: 20100101
  29. URINARY ANTISPASMODICS [Concomitant]
     Dosage: 5 MG EVERY EVENING
     Route: 048
     Dates: start: 20080101
  30. PRILOSEC [Concomitant]
     Route: 048
     Dates: start: 20090101
  31. DOCETAXEL [Suspect]
     Dosage: EVERY 21 DAYS
     Route: 041
     Dates: start: 20100101, end: 20100101
  32. CARBOPLATIN [Suspect]
     Dosage: EVERY 21 DAYS
     Route: 042
     Dates: start: 20100101, end: 20100101
  33. AVASTIN [Suspect]
     Indication: NON-SMALL CELL LUNG CANCER
     Dosage: EVERY 21 DAYS
     Route: 042
     Dates: start: 20100514, end: 20100514
  34. ZANAFLEX [Concomitant]
     Route: 048
     Dates: start: 20080101
  35. VALSARTAN [Concomitant]
     Indication: HYPERTENSION
     Route: 048
     Dates: start: 20080101
  36. DEPAKOTE [Concomitant]
     Dosage: MOOD
     Route: 048
     Dates: start: 20000101
  37. DEPAKOTE [Concomitant]
     Dosage: SLEEP AID  NOT USED FOR SEIZURES
     Route: 048
     Dates: start: 20000101
  38. OXYCONTIN [Concomitant]
     Indication: PAIN
     Route: 048
     Dates: start: 20080101
  39. XANAX [Concomitant]
     Indication: ANXIETY
     Dosage: 4 TIMES A DAY AS NEEDED
     Route: 048
     Dates: start: 20080101

REACTIONS (2)
  - MENTAL STATUS CHANGES [None]
  - HYPERTENSION [None]
